FAERS Safety Report 8774009 (Version 1)
Quarter: 2012Q4

REPORT INFORMATION
  Report Type: 
  Country: US (occurrence: US)
  Receive Date: 20120907
  Receipt Date: 20120907
  Transmission Date: 20130627
  Serious: Yes (Hospitalization)
  Sender: FDA-Public Use
  Company Number: US-AMGEN-USASP2012056028

PATIENT
  Age: 60 Year
  Sex: Male

DRUGS (1)
  1. ENBREL [Suspect]
     Indication: PSORIATIC ARTHROPATHY
     Dosage: 50 mg, qwk
     Route: 058
     Dates: start: 20120215, end: 20120615

REACTIONS (5)
  - Intervertebral disc disorder [Recovered/Resolved]
  - Wound [Recovered/Resolved]
  - Impaired healing [Unknown]
  - Psoriatic arthropathy [Not Recovered/Not Resolved]
  - Injection site pruritus [Recovered/Resolved]
